FAERS Safety Report 9214413 (Version 9)
Quarter: 2014Q3

REPORT INFORMATION
  Report Type: Spontaneous
  Country: US (occurrence: US)
  Receive Date: 20130405
  Receipt Date: 20140715
  Transmission Date: 20150326
  Serious: Yes (Disabling)
  Sender: FDA-Public Use
  Company Number: US-MERCK-1304USA001973

PATIENT
  Sex: Male

DRUGS (3)
  1. PROPECIA [Suspect]
     Active Substance: FINASTERIDE
     Dosage: 1 MG, UNK
     Route: 048
     Dates: end: 2011
  2. ALBUTEROL. [Concomitant]
     Active Substance: ALBUTEROL
     Indication: ASTHMA
     Dosage: UNK
     Route: 055
  3. PROPECIA [Suspect]
     Active Substance: FINASTERIDE
     Indication: ANDROGENETIC ALOPECIA
     Dosage: 1 MG, QD
     Route: 048
     Dates: start: 2002, end: 2007

REACTIONS (24)
  - Back pain [Unknown]
  - Upper respiratory tract infection [Unknown]
  - Sinusitis [Not Recovered/Not Resolved]
  - Viral infection [Unknown]
  - Varicocele [Recovered/Resolved]
  - Semen volume decreased [Unknown]
  - Ejaculation disorder [Unknown]
  - Fall [Unknown]
  - Pain in extremity [Unknown]
  - Oligospermia [Not Recovered/Not Resolved]
  - Libido decreased [Unknown]
  - Erectile dysfunction [Unknown]
  - Upper respiratory tract infection [Unknown]
  - Varicocele repair [Recovering/Resolving]
  - Orgasm abnormal [Unknown]
  - Pharyngitis [Unknown]
  - Epididymal cyst [Unknown]
  - Infertility [Unknown]
  - Neck pain [Not Recovered/Not Resolved]
  - Arthralgia [Unknown]
  - Bacterial infection [Unknown]
  - Testicular pain [Recovering/Resolving]
  - Spermatocele [Unknown]
  - Inguinal hernia repair [Unknown]

NARRATIVE: CASE EVENT DATE: 2004
